FAERS Safety Report 14935737 (Version 8)
Quarter: 2019Q1

REPORT INFORMATION
  Report Type: Spontaneous
  Country: US (occurrence: US)
  Receive Date: 20180524
  Receipt Date: 20190320
  Transmission Date: 20190417
  Serious: Yes (Hospitalization)
  Sender: FDA-Public Use
  Company Number: US-ACTELION-A-NJ2018-172603

PATIENT
  Sex: Female
  Weight: 55.78 kg

DRUGS (5)
  1. VELETRI [Suspect]
     Active Substance: EPOPROSTENOL
     Indication: PULMONARY ARTERIAL HYPERTENSION
     Dosage: 29.25 NG/KG, PER MIN
     Route: 042
     Dates: start: 20190208
  2. VELETRI [Suspect]
     Active Substance: EPOPROSTENOL
     Dosage: 17 NG/KG, PER MIN
     Route: 042
  3. VELETRI [Suspect]
     Active Substance: EPOPROSTENOL
     Dosage: 23.7 UNK, UNK
     Route: 042
  4. REVATIO [Suspect]
     Active Substance: SILDENAFIL CITRATE
     Indication: PRODUCT USED FOR UNKNOWN INDICATION
     Route: 065
  5. VELETRI [Suspect]
     Active Substance: EPOPROSTENOL
     Dosage: 18.3 NG/KG, PER MIN
     Route: 042

REACTIONS (21)
  - Faeces soft [Recovering/Resolving]
  - Myalgia [Unknown]
  - Pain [Unknown]
  - Rash [Not Recovered/Not Resolved]
  - Restless legs syndrome [Unknown]
  - Application site erythema [Unknown]
  - Nausea [Not Recovered/Not Resolved]
  - Blood pressure decreased [Unknown]
  - Flushing [Unknown]
  - Back pain [Recovered/Resolved]
  - Feeling abnormal [Unknown]
  - Vomiting [Unknown]
  - Headache [Unknown]
  - Peripheral swelling [Unknown]
  - Device use error [Unknown]
  - Pain in jaw [Unknown]
  - Head discomfort [Unknown]
  - Diarrhoea [Unknown]
  - Skin erosion [Unknown]
  - Rash macular [Unknown]
  - Application site pruritus [Unknown]
